FAERS Safety Report 5914867-9 (Version None)
Quarter: 2008Q4

REPORT INFORMATION
  Report Type: 
  Country: None (occurrence: None)
  Receive Date: 20081010
  Receipt Date: 20081002
  Transmission Date: 20090506
  Serious: Yes (Other)
  Sender: FDA-Public Use
  Company Number: PHHY2008CA23497

PATIENT
  Sex: Male

DRUGS (1)
  1. TOBI [Suspect]
     Indication: TOTAL LUNG CAPACITY DECREASED
     Dosage: UNK

REACTIONS (1)
  - PANIC ATTACK [None]
